FAERS Safety Report 13895963 (Version 1)
Quarter: 2017Q3

REPORT INFORMATION
  Report Type: Spontaneous
  Country: US (occurrence: US)
  Receive Date: 20170822
  Receipt Date: 20170822
  Transmission Date: 20171127
  Serious: No
  Sender: FDA-Public Use
  Company Number: None

PATIENT
  Age: 63 Year
  Sex: Female
  Weight: 97.2 kg

DRUGS (2)
  1. TYLENOL WITH CODEINE [Concomitant]
     Active Substance: ACETAMINOPHEN\CODEINE PHOSPHATE
  2. VENLAFAXINE HCL [Suspect]
     Active Substance: VENLAFAXINE HYDROCHLORIDE
     Indication: HOT FLUSH
     Dosage: ?          QUANTITY:60 CAPSULE(S);?
     Route: 048
     Dates: start: 20170405, end: 20170805

REACTIONS (16)
  - Vertigo [None]
  - Nightmare [None]
  - Therapy cessation [None]
  - Laceration [None]
  - Migraine [None]
  - Hyperhidrosis [None]
  - Pyrexia [None]
  - Pruritus generalised [None]
  - Jaw disorder [None]
  - Malaise [None]
  - Dyspepsia [None]
  - Fall [None]
  - Visual impairment [None]
  - Skin haemorrhage [None]
  - Decreased appetite [None]
  - Drug ineffective [None]

NARRATIVE: CASE EVENT DATE: 20170814
